FAERS Safety Report 13991347 (Version 2)
Quarter: 2017Q4

REPORT INFORMATION
  Report Type: Spontaneous
  Country: CH (occurrence: CH)
  Receive Date: 20170920
  Receipt Date: 20171002
  Transmission Date: 20180321
  Serious: Yes (Other)
  Sender: FDA-Public Use
  Company Number: CH-BAUSCH-BL-2017-027634

PATIENT
  Sex: Male

DRUGS (2)
  1. ZYCLARA [Suspect]
     Active Substance: IMIQUIMOD
     Indication: ACTINIC KERATOSIS
     Route: 065
     Dates: start: 20161108
  2. ZYCLARA [Suspect]
     Active Substance: IMIQUIMOD
     Route: 065
     Dates: start: 201702, end: 201702

REACTIONS (6)
  - Burning sensation [Unknown]
  - Headache [Unknown]
  - Trigeminal neuralgia [Not Recovered/Not Resolved]
  - Inflammation [Not Recovered/Not Resolved]
  - Diplopia [Unknown]
  - Facial pain [Unknown]

NARRATIVE: CASE EVENT DATE: 201708
